FAERS Safety Report 19065029 (Version 2)
Quarter: 2021Q2

REPORT INFORMATION
  Report Type: Spontaneous
  Country: US (occurrence: US)
  Receive Date: 20210326
  Receipt Date: 20210420
  Transmission Date: 20210717
  Serious: Yes (Hospitalization, Other)
  Sender: FDA-Public Use
  Company Number: US-009507513-2103USA004782

PATIENT
  Age: 68 Year
  Sex: Female
  Weight: 97 kg

DRUGS (10)
  1. PFIZER?BIONTECH COVID?19 VACCINE [Suspect]
     Active Substance: TOZINAMERAN
     Dosage: UNK
     Dates: start: 20210304
  2. OMEPRAZOLE. [Concomitant]
     Active Substance: OMEPRAZOLE
     Indication: ABDOMINAL PAIN
  3. PRINIVIL [Suspect]
     Active Substance: LISINOPRIL
     Route: 048
  4. AMLODIPINE [Suspect]
     Active Substance: AMLODIPINE BESYLATE
  5. LOSARTAN. [Concomitant]
     Active Substance: LOSARTAN
  6. METOPROLOL. [Suspect]
     Active Substance: METOPROLOL
  7. PFIZER?BIONTECH COVID?19 VACCINE [Suspect]
     Active Substance: TOZINAMERAN
     Indication: COVID-19 PROPHYLAXIS
     Dosage: 1 UNK
     Dates: start: 20210212
  8. HYDROCHLOROTHIAZIDE. [Suspect]
     Active Substance: HYDROCHLOROTHIAZIDE
  9. TYLENOL [Concomitant]
     Active Substance: ACETAMINOPHEN
     Indication: ARTHRITIS
  10. ELIQUIS [Concomitant]
     Active Substance: APIXABAN
     Dosage: UNK
     Dates: start: 202008

REACTIONS (19)
  - Tooth injury [Unknown]
  - Fatigue [Unknown]
  - Malaise [Recovered/Resolved]
  - Oropharyngeal discomfort [Recovering/Resolving]
  - Feeling abnormal [Recovered/Resolved]
  - Hiatus hernia [Unknown]
  - Pulse abnormal [Recovered/Resolved]
  - Decreased appetite [Unknown]
  - Hypotension [Recovered/Resolved]
  - Emotional distress [Recovered/Resolved]
  - Asthenia [Recovered/Resolved]
  - Dysphonia [Unknown]
  - Ill-defined disorder [Recovered/Resolved]
  - Endodontic procedure [Unknown]
  - Adverse event [Recovered/Resolved]
  - Weight decreased [Unknown]
  - Tooth extraction [Unknown]
  - Pulmonary embolism [Not Recovered/Not Resolved]
  - Cough [Not Recovered/Not Resolved]

NARRATIVE: CASE EVENT DATE: 202008
